FAERS Safety Report 10019692 (Version 2)
Quarter: 2014Q1

REPORT INFORMATION
  Report Type: Spontaneous
  Country: US (occurrence: US)
  Receive Date: 20140318
  Receipt Date: 20140324
  Transmission Date: 20141002
  Serious: No
  Sender: FDA-Public Use
  Company Number: US-GILEAD-2014-0096858

PATIENT
  Age: 67 Year
  Sex: Female

DRUGS (3)
  1. SOVALDI [Suspect]
     Indication: CHRONIC HEPATITIS C
     Dosage: 2 DF, QD
     Route: 048
     Dates: start: 20140312
  2. SOVALDI [Suspect]
     Dosage: 1 DF, QD
     Route: 048
  3. RIBAVIRIN [Concomitant]

REACTIONS (1)
  - Accidental overdose [Unknown]
